FAERS Safety Report 20732873 (Version 1)
Quarter: 2022Q2

REPORT INFORMATION
  Report Type: Spontaneous
  Country: CN (occurrence: CN)
  Receive Date: 20220420
  Receipt Date: 20220420
  Transmission Date: 20220721
  Serious: Yes (Hospitalization, Other)
  Sender: FDA-Public Use
  Company Number: CN-BAXTER-2022BAX008526

PATIENT
  Age: 10 Year
  Sex: Male
  Weight: 34.5 kg

DRUGS (2)
  1. CYCLOPHOSPHAMIDE [Suspect]
     Active Substance: CYCLOPHOSPHAMIDE
     Indication: Acute lymphocytic leukaemia
     Route: 041
     Dates: start: 20220326, end: 20220326
  2. CYTARABINE [Suspect]
     Active Substance: CYTARABINE
     Indication: Acute lymphocytic leukaemia
     Route: 041
     Dates: start: 20220326, end: 20220402

REACTIONS (5)
  - Haemorrhage subcutaneous [Unknown]
  - Myelosuppression [Recovering/Resolving]
  - Infection [Recovering/Resolving]
  - Agranulocytosis [Unknown]
  - Pyrexia [Unknown]

NARRATIVE: CASE EVENT DATE: 20220403
